FAERS Safety Report 11256589 (Version 1)
Quarter: 2015Q3

REPORT INFORMATION
  Report Type: Spontaneous
  Country: US (occurrence: US)
  Receive Date: 20150709
  Receipt Date: 20150709
  Transmission Date: 20151125
  Serious: No
  Sender: FDA-Public Use
  Company Number: US-PURDUE-USA-2014-0118701

PATIENT
  Age: 18 Year
  Sex: Female

DRUGS (1)
  1. BUTRANS [Suspect]
     Active Substance: BUPRENORPHINE
     Indication: MIGRAINE
     Dosage: 15 MCG/HR, WEEKLY
     Route: 062
     Dates: start: 201410

REACTIONS (5)
  - Product quality issue [Unknown]
  - Drug withdrawal syndrome [Recovered/Resolved]
  - Pain [Unknown]
  - Drug ineffective [Recovered/Resolved]
  - Headache [Unknown]

NARRATIVE: CASE EVENT DATE: 20141013
